FAERS Safety Report 6827724-0 (Version None)
Quarter: 2010Q3

REPORT INFORMATION
  Report Type: 
  Country: None (occurrence: None)
  Receive Date: 20100709
  Receipt Date: 20070126
  Transmission Date: 20110219
  Serious: Yes (Other)
  Sender: FDA-Public Use
  Company Number: US-PFIZER INC-2007008077

PATIENT
  Sex: Female
  Weight: 85.7 kg

DRUGS (3)
  1. CHANTIX [Suspect]
     Indication: SMOKING CESSATION THERAPY
     Dates: start: 20070123
  2. KLONOPIN [Concomitant]
  3. AMBIEN [Concomitant]

REACTIONS (2)
  - ANXIETY [None]
  - INSOMNIA [None]
